FAERS Safety Report 7341632-0 (Version None)
Quarter: 2011Q1

REPORT INFORMATION
  Report Type: 
  Country: None (occurrence: None)
  Receive Date: 20110228
  Receipt Date: 20110218
  Transmission Date: 20110831
  Serious: Yes (Life-Threatening, Other)
  Sender: FDA-Public Use
  Company Number: TAJPN-10-0762

PATIENT
  Age: 47 Year
  Sex: Female
  Weight: 40 kg

DRUGS (4)
  1. TYKERB [Concomitant]
  2. ABRAXANE [Suspect]
     Indication: BREAST CANCER
     Dosage: (350 MG)
     Dates: start: 20101015, end: 20101015
  3. MEROPENEM [Concomitant]
  4. HERCEPTIN [Concomitant]

REACTIONS (5)
  - MUSCLE ABSCESS [None]
  - C-REACTIVE PROTEIN INCREASED [None]
  - SEPSIS [None]
  - TUMOUR NECROSIS [None]
  - BONE MARROW FAILURE [None]
